FAERS Safety Report 7964350-4 (Version None)
Quarter: 2011Q4

REPORT INFORMATION
  Report Type: 
  Country: None (occurrence: None)
  Receive Date: 20111208
  Receipt Date: 20111128
  Transmission Date: 20120403
  Serious: Yes (Hospitalization)
  Sender: FDA-Public Use
  Company Number: US-BAYER-201038913NA

PATIENT
  Age: 29 Year
  Sex: Female
  Weight: 102.49 kg

DRUGS (10)
  1. HYDROCODONE BITARTRATE AND ACETAMINOPHEN [Concomitant]
     Indication: PAIN
     Dosage: UNK
     Route: 048
     Dates: start: 20070408
  2. YAZ [Suspect]
     Indication: PREMENSTRUAL SYNDROME
  3. WELLBUTRIN XL [Concomitant]
     Indication: DEPRESSION
     Dosage: 1 DF, QD
     Route: 048
     Dates: start: 20060901, end: 20070801
  4. LEVOTHYROXINE SODIUM [Concomitant]
     Indication: HYPOTHYROIDISM
     Dosage: UNK
     Dates: start: 20070201, end: 20071201
  5. YAZ [Suspect]
     Indication: ACNE
  6. SYNTHROID [Concomitant]
     Indication: HYPOTHYROIDISM
     Dosage: 1 DF, QD
     Dates: start: 20060201
  7. METFORMIN HCL [Concomitant]
     Indication: WEIGHT DECREASED
     Dosage: 1 DF, BID
     Route: 048
     Dates: start: 20060201, end: 20071201
  8. YAZ [Suspect]
     Indication: POLYCYSTIC OVARIES
  9. METRONIDAZOLE [Concomitant]
     Dosage: UNK
     Route: 061
     Dates: start: 20070301
  10. YAZ [Suspect]
     Indication: CONTRACEPTION
     Route: 048
     Dates: start: 20070228, end: 20070410

REACTIONS (2)
  - BRAIN STEM INFARCTION [None]
  - CEREBROVASCULAR ACCIDENT [None]
